FAERS Safety Report 8544445-7 (Version None)
Quarter: 2012Q3

REPORT INFORMATION
  Report Type: 
  Country: None (occurrence: None)
  Receive Date: 20120717
  Receipt Date: 20120416
  Transmission Date: 20120928
  Serious: Yes (Other)
  Sender: FDA-Public Use
  Company Number: 959543

PATIENT
  Age: 61 Year
  Sex: Female
  Weight: 50.8029 kg

DRUGS (2)
  1. UMCKA CHERRY 99% ALC-FREE/4 OZ SYRUP [Suspect]
     Dosage: 1 TEASPOON 4-5 TIMES DAILY
     Dates: start: 20120409, end: 20120409
  2. CLONIDINE [Concomitant]

REACTIONS (4)
  - DIZZINESS [None]
  - VOMITING [None]
  - DEHYDRATION [None]
  - NAUSEA [None]
